FAERS Safety Report 26001964 (Version 1)
Quarter: 2025Q4

REPORT INFORMATION
  Report Type: Spontaneous
  Country: JP (occurrence: JP)
  Receive Date: 20251105
  Receipt Date: 20251105
  Transmission Date: 20260118
  Serious: Yes (Death, Other)
  Sender: MERCK SHARP & DOHME LLC
  Company Number: JP-009507513-2345991

PATIENT
  Age: 74 Year
  Sex: Male

DRUGS (3)
  1. KEYTRUDA [Suspect]
     Active Substance: PEMBROLIZUMAB
  2. GEMCITABINE [Suspect]
     Active Substance: GEMCITABINE
  3. CISPLATIN [Suspect]
     Active Substance: CISPLATIN

REACTIONS (3)
  - Death [Fatal]
  - Blood potassium decreased [Unknown]
  - Acute kidney injury [Unknown]
